FAERS Safety Report 15247649 (Version 1)
Quarter: 2018Q3

REPORT INFORMATION
  Report Type: Spontaneous
  Country: CA (occurrence: CA)
  Receive Date: 20180807
  Receipt Date: 20180807
  Transmission Date: 20181010
  Serious: Yes (Other)
  Sender: FDA-Public Use
  Company Number: CA-CONCORDIA PHARMACEUTICALS INC.-GSH201808-002797

PATIENT
  Sex: Female

DRUGS (6)
  1. ERELZI [Suspect]
     Active Substance: ETANERCEPT-SZZS
     Dosage: 3 MONTHS 24 DAYS
     Route: 065
     Dates: start: 20180326, end: 20180719
  2. KEVZARA [Suspect]
     Active Substance: SARILUMAB
     Dosage: 1 MONTH 14 DAYS
     Route: 065
     Dates: start: 20180213, end: 20180326
  3. METHOTREXATE. [Concomitant]
     Active Substance: METHOTREXATE
     Dates: start: 201708
  4. SARILUMAB [Suspect]
     Active Substance: SARILUMAB
     Route: 065
  5. XELJANZ [Concomitant]
     Active Substance: TOFACITINIB CITRATE
     Indication: RHEUMATOID ARTHRITIS
     Dates: start: 20180719
  6. HYDROXYCHLOROQUINE [Suspect]
     Active Substance: HYDROXYCHLOROQUINE
     Route: 065
     Dates: start: 201708

REACTIONS (3)
  - Neutropenia [Unknown]
  - Drug ineffective [Unknown]
  - Unevaluable event [Unknown]
